FAERS Safety Report 20684533 (Version 5)
Quarter: 2022Q2

REPORT INFORMATION
  Report Type: Spontaneous
  Country: US (occurrence: US)
  Receive Date: 20220407
  Receipt Date: 20220601
  Transmission Date: 20220721
  Serious: Yes (Death, Hospitalization)
  Sender: FDA-Public Use
  Company Number: US-CATALYST PHARMACEUTICALS, INC-2021CAT00529

PATIENT
  Sex: Male
  Weight: 83.9 kg

DRUGS (23)
  1. FIRDAPSE [Suspect]
     Active Substance: AMIFAMPRIDINE PHOSPHATE
     Indication: Myasthenic syndrome
     Dosage: 10 MG, 4X/DAY (EVERY 6 HOURS)
     Route: 048
     Dates: start: 20210928, end: 2021
  2. FIRDAPSE [Suspect]
     Active Substance: AMIFAMPRIDINE PHOSPHATE
     Dosage: 60 MG DAILY
     Route: 048
     Dates: start: 2021, end: 2021
  3. FIRDAPSE [Suspect]
     Active Substance: AMIFAMPRIDINE PHOSPHATE
     Dosage: 80 MG DAILY
     Route: 048
     Dates: start: 2021, end: 2021
  4. FIRDAPSE [Suspect]
     Active Substance: AMIFAMPRIDINE PHOSPHATE
     Dosage: 20 MG, 6X/DAY (EVERY 4 HOURS)
     Route: 048
     Dates: start: 202111, end: 2021
  5. FIRDAPSE [Suspect]
     Active Substance: AMIFAMPRIDINE PHOSPHATE
     Dosage: MORE THAN 120 MG DAILY
     Route: 048
     Dates: start: 2021, end: 2021
  6. FIRDAPSE [Suspect]
     Active Substance: AMIFAMPRIDINE PHOSPHATE
     Dosage: 20 MG, 4X/DAY (EVERY 6 HOURS)
     Route: 048
     Dates: start: 2021, end: 2021
  7. FIRDAPSE [Suspect]
     Active Substance: AMIFAMPRIDINE PHOSPHATE
     Dosage: 20 MG, 6X/DAY (EVERY 4 HOURS)
     Route: 048
     Dates: start: 2021
  8. FIRDAPSE [Suspect]
     Active Substance: AMIFAMPRIDINE PHOSPHATE
     Dosage: 20 MG, 4X/DAY
     Route: 048
  9. FIRDAPSE [Suspect]
     Active Substance: AMIFAMPRIDINE PHOSPHATE
     Dosage: 20 MG, 6X/DAY
     Route: 048
  10. FIRDAPSE [Suspect]
     Active Substance: AMIFAMPRIDINE PHOSPHATE
     Dosage: 120 MG DAILY, (4X/DAY IN DIVIDED DOSES)
     Route: 048
  11. FIRDAPSE [Suspect]
     Active Substance: AMIFAMPRIDINE PHOSPHATE
     Dosage: 20 MG, 6X/DAY
  12. FIRDAPSE [Suspect]
     Active Substance: AMIFAMPRIDINE PHOSPHATE
     Dosage: 120 MG, DAILY (FOUR DIVIDED DOSES)
     Route: 048
     Dates: end: 20220503
  13. OXYCODONE [Concomitant]
     Active Substance: OXYCODONE
     Dosage: 10 MG, 7X/DAY
  14. MESTINON [Concomitant]
     Active Substance: PYRIDOSTIGMINE BROMIDE
     Dosage: 60 MG, 6X/DAY (EVERY 4 HOURS)
  15. MESTINON [Concomitant]
     Active Substance: PYRIDOSTIGMINE BROMIDE
     Dosage: 602 MG, 6X/DAY (EVERY 4 HOURS)
  16. VITAMIN D3 EXTRA STRENGTH [Concomitant]
     Dosage: 25 ?G, 1X/DAY
     Route: 048
  17. VITAMIN D3 EXTRA STRENGTH [Concomitant]
     Dosage: 25 MG, DAILY
  18. UNSPECIFIED INGREDIENT [Concomitant]
     Active Substance: UNSPECIFIED INGREDIENT
  19. PANTOPRAZOLE [Concomitant]
     Active Substance: PANTOPRAZOLE
     Dosage: 40 MG, 1X/DAY
  20. HYDROCODONE [Concomitant]
     Active Substance: HYDROCODONE
     Dosage: UNK, AS NEEDED
  21. LORTAB [Concomitant]
     Active Substance: ACETAMINOPHEN\HYDROCODONE BITARTRATE
     Dosage: UNK, AS NEEDED
  22. PREDNISONE [Concomitant]
     Active Substance: PREDNISONE
     Dosage: 10 MG, DAILY
  23. BACTRIM [Concomitant]
     Active Substance: SULFAMETHOXAZOLE\TRIMETHOPRIM
     Dosage: UNK, DAILY

REACTIONS (14)
  - Small cell lung cancer [Fatal]
  - Condition aggravated [Fatal]
  - Pneumothorax [Recovering/Resolving]
  - Aspiration [Recovering/Resolving]
  - Oesophageal obstruction [Recovering/Resolving]
  - Drug ineffective [Recovered/Resolved]
  - Intentional product misuse [Recovered/Resolved]
  - Extra dose administered [Not Recovered/Not Resolved]
  - Intentional product use issue [Not Recovered/Not Resolved]
  - Hypokinesia [Not Recovered/Not Resolved]
  - Vomiting [Recovering/Resolving]
  - Prescribed overdose [Not Recovered/Not Resolved]
  - Paraesthesia [Recovered/Resolved]
  - Asthenia [Not Recovered/Not Resolved]

NARRATIVE: CASE EVENT DATE: 20210101
